FAERS Safety Report 5399457-1 (Version None)
Quarter: 2007Q3

REPORT INFORMATION
  Report Type: 
  Country: None (occurrence: None)
  Receive Date: 20070727
  Receipt Date: 20070711
  Transmission Date: 20080115
  Serious: Yes (Other)
  Sender: FDA-Public Use
  Company Number: AU-PFIZER INC-2007052633

PATIENT
  Sex: Male

DRUGS (3)
  1. LIPITOR [Suspect]
     Indication: BLOOD CHOLESTEROL INCREASED
     Route: 048
     Dates: start: 20051201, end: 20070627
  2. LIPITOR [Suspect]
     Indication: LOW DENSITY LIPOPROTEIN INCREASED
  3. CARTIA XT [Concomitant]
     Route: 048

REACTIONS (3)
  - BLOOD PROLACTIN INCREASED [None]
  - GYNAECOMASTIA [None]
  - PITUITARY TUMOUR BENIGN [None]
